FAERS Safety Report 4490952-6 (Version None)
Quarter: 2004Q4

REPORT INFORMATION
  Report Type: 
  Country: None (occurrence: None)
  Receive Date: 20041027
  Receipt Date: 20041014
  Transmission Date: 20050328
  Serious: Yes (Life-Threatening, Hospitalization)
  Sender: FDA-Public Use
  Company Number: S04-UKI-06659-01

PATIENT
  Age: 33 Year
  Sex: Female

DRUGS (2)
  1. ACAMPROSATE [Suspect]
     Indication: ANXIETY
     Dosage: 5 TABLET QD PO
     Route: 048
     Dates: start: 20040801, end: 20040925
  2. PROPRANOLOL [Suspect]
     Indication: ANXIETY
     Dosage: 40 MG QD PO
     Route: 048
     Dates: start: 20040601, end: 20040925

REACTIONS (5)
  - FALL [None]
  - GLUCOSE TOLERANCE IMPAIRED [None]
  - HEAD INJURY [None]
  - HYPONATRAEMIA [None]
  - RENAL FAILURE ACUTE [None]
